FAERS Safety Report 19028060 (Version 1)
Quarter: 2021Q1

REPORT INFORMATION
  Report Type: Spontaneous
  Country: US (occurrence: US)
  Receive Date: 20210318
  Receipt Date: 20210318
  Transmission Date: 20210420
  Serious: No
  Sender: FDA-Public Use
  Company Number: US-CATALYST PHARMACEUTICALS, INC-2021CAT00029

PATIENT
  Age: 71 Year
  Sex: Female
  Weight: 53.52 kg

DRUGS (3)
  1. UNSPECIFIED SUPPLEMENTS [Concomitant]
  2. ATORVASTATIN [Concomitant]
     Active Substance: ATORVASTATIN
     Dosage: 10 MG, 1X/DAY
  3. FIRDAPSE [Suspect]
     Active Substance: AMIFAMPRIDINE PHOSPHATE
     Indication: MYASTHENIC SYNDROME
     Dosage: 25 MG DAILY

REACTIONS (5)
  - Burning sensation [Recovered/Resolved]
  - Hypoaesthesia oral [Recovered/Resolved]
  - Insomnia [Recovered/Resolved]
  - Paraesthesia oral [Recovered/Resolved]
  - Paraesthesia [Recovered/Resolved]

NARRATIVE: CASE EVENT DATE: 20210120
